FAERS Safety Report 6076162-X (Version None)
Quarter: 2009Q1

REPORT INFORMATION
  Report Type: 
  Country: None (occurrence: None)
  Receive Date: 20090212
  Receipt Date: 20090123
  Transmission Date: 20090719
  Serious: No
  Sender: FDA-Public Use
  Company Number: US-B.I. PHARMACEUTICALS,INC./RIDGEFIELD-2008-BP-16053BP

PATIENT
  Sex: Male

DRUGS (7)
  1. SPIRIVA [Suspect]
     Indication: CHRONIC OBSTRUCTIVE PULMONARY DISEASE
     Dosage: 18MCG
     Route: 055
     Dates: start: 20080829
  2. SPIRIVA [Suspect]
     Indication: WHEEZING
  3. SPIRIVA [Suspect]
     Indication: COUGH
  4. LIPITOR [Concomitant]
     Dosage: 10MG
  5. FISH OIL [Concomitant]
     Dosage: 1000MG
  6. CHROMIUM PICOLINATE [Concomitant]
     Dosage: 200MCG
  7. ASPIRIN [Concomitant]

REACTIONS (3)
  - DRUG EFFECT DECREASED [None]
  - DRUG INEFFECTIVE [None]
  - WHEEZING [None]
